FAERS Safety Report 10022782 (Version 2)
Quarter: 2014Q1

REPORT INFORMATION
  Report Type: Spontaneous
  Country: US (occurrence: US)
  Receive Date: 20140319
  Receipt Date: 20140320
  Transmission Date: 20141002
  Serious: Yes (Hospitalization)
  Sender: FDA-Public Use
  Company Number: US-PFIZER INC-2014078254

PATIENT
  Sex: Male

DRUGS (1)
  1. EFFEXOR XR [Suspect]
     Dosage: UNK

REACTIONS (6)
  - Road traffic accident [Unknown]
  - Loss of consciousness [Unknown]
  - Dizziness [Unknown]
  - Disorientation [Unknown]
  - Heart rate irregular [Unknown]
  - Blood test abnormal [Unknown]
